FAERS Safety Report 5962631-7 (Version None)
Quarter: 2008Q4

REPORT INFORMATION
  Report Type: 
  Country: None (occurrence: None)
  Receive Date: 20081121
  Receipt Date: 20081118
  Transmission Date: 20090506
  Serious: Yes (Hospitalization, Other)
  Sender: FDA-Public Use
  Company Number: PHEH2008US10326

PATIENT
  Sex: Female

DRUGS (3)
  1. DIOVAN [Suspect]
     Dosage: UNK, UNK
  2. TOPROL-XL [Suspect]
     Dosage: UNK, UNK
  3. NORVASC [Suspect]
     Dosage: UNK, UNK

REACTIONS (10)
  - CARDIAC OPERATION [None]
  - CEREBROVASCULAR ACCIDENT [None]
  - COORDINATION ABNORMAL [None]
  - DIZZINESS [None]
  - FEELING DRUNK [None]
  - HYPERSENSITIVITY [None]
  - JOINT SWELLING [None]
  - NAUSEA [None]
  - OEDEMA MOUTH [None]
  - SWELLING FACE [None]
